FAERS Safety Report 8287857-1 (Version None)
Quarter: 2012Q2

REPORT INFORMATION
  Report Type: 
  Country: None (occurrence: None)
  Receive Date: 20120416
  Receipt Date: 20120410
  Transmission Date: 20120825
  Serious: No
  Sender: FDA-Public Use
  Company Number: US-PFIZER INC-2012091239

PATIENT
  Sex: Male
  Weight: 108.84 kg

DRUGS (3)
  1. EXFORGE [Concomitant]
     Indication: HYPERTENSION
     Dosage: [AMLODIPINE 5 MG]/[VALSARTAN 320 MG], DAILY
  2. LIPITOR [Suspect]
     Indication: BLOOD CHOLESTEROL INCREASED
     Dosage: 20 MG, DAILY
     Route: 048
     Dates: end: 20120401
  3. LISINOPRIL [Suspect]
     Indication: HYPERTENSION
     Dosage: UNK

REACTIONS (4)
  - BLOOD TRIGLYCERIDES INCREASED [None]
  - HIGH DENSITY LIPOPROTEIN DECREASED [None]
  - MYALGIA [None]
  - COUGH [None]
